FAERS Safety Report 8797791 (Version 2)
Quarter: 2012Q4

REPORT INFORMATION
  Report Type: 
  Country: US (occurrence: US)
  Receive Date: 20120919
  Receipt Date: 20121122
  Transmission Date: 20130627
  Serious: Yes (Death)
  Sender: FDA-Public Use
  Company Number: US-ROCHE-1126012

PATIENT
  Age: 67 Year
  Sex: Female

DRUGS (3)
  1. AVASTIN [Suspect]
     Indication: BRAIN NEOPLASM MALIGNANT
     Route: 065
     Dates: start: 20070314, end: 20070712
  2. AVASTIN [Suspect]
     Indication: BRAIN NEOPLASM MALIGNANT
  3. AVASTIN [Suspect]
     Indication: GLIOBLASTOMA

REACTIONS (1)
  - Neoplasm progression [Fatal]
